FAERS Safety Report 6111106-3 (Version None)
Quarter: 2009Q1

REPORT INFORMATION
  Report Type: 
  Country: None (occurrence: None)
  Receive Date: 20090311
  Receipt Date: 20090303
  Transmission Date: 20090719
  Serious: Yes (Other)
  Sender: FDA-Public Use
  Company Number: AU-ABBOTT-09P-008-0557267-00

PATIENT
  Age: 39 Year
  Sex: Female

DRUGS (4)
  1. KALIXOCIN [Suspect]
     Indication: SINUSITIS
     Dates: start: 20090119, end: 20090126
  2. KALIXOCIN [Suspect]
  3. CLARATYNE [Concomitant]
     Indication: SINUSITIS
     Dates: start: 20090119, end: 20090120
  4. CHILDRENS PANADOL [Concomitant]
     Indication: PAIN
     Dates: start: 20090119, end: 20090119

REACTIONS (1)
  - ABORTION SPONTANEOUS [None]
